FAERS Safety Report 9650828 (Version 1)
Quarter: 2013Q4

REPORT INFORMATION
  Report Type: Spontaneous
  Country: US (occurrence: US)
  Receive Date: 20131029
  Receipt Date: 20131029
  Transmission Date: 20140711
  Serious: No
  Sender: FDA-Public Use
  Company Number: US-JNJFOC-20131011930

PATIENT
  Age: 70 Year
  Sex: Male

DRUGS (1)
  1. UNSPECIFIED GENERIC FENTANYL PATCH [Suspect]
     Indication: PROCEDURAL PAIN
     Route: 062
     Dates: start: 2013

REACTIONS (5)
  - Drug ineffective [Not Recovered/Not Resolved]
  - Adverse event [Not Recovered/Not Resolved]
  - Drug dispensing error [Not Recovered/Not Resolved]
  - Pain [Not Recovered/Not Resolved]
  - Product quality issue [Unknown]
